FAERS Safety Report 6131662-9 (Version None)
Quarter: 2009Q1

REPORT INFORMATION
  Report Type: 
  Country: None (occurrence: None)
  Receive Date: 20090325
  Receipt Date: 20090120
  Transmission Date: 20090719
  Serious: Yes (Other)
  Sender: FDA-Public Use
  Company Number: US-BRISTOL-MYERS SQUIBB COMPANY-14477426

PATIENT
  Age: 7 Decade
  Sex: Female

DRUGS (2)
  1. ERBITUX [Suspect]
     Indication: HEAD AND NECK CANCER
     Dates: start: 20080101
  2. CISPLATIN [Suspect]

REACTIONS (1)
  - BLOOD CREATININE INCREASED [None]
